FAERS Safety Report 5573930-5 (Version None)
Quarter: 2007Q4

REPORT INFORMATION
  Report Type: 
  Country: None (occurrence: None)
  Receive Date: 20071220
  Receipt Date: 20071217
  Transmission Date: 20080405
  Serious: Yes (Other)
  Sender: FDA-Public Use
  Company Number: 021732

PATIENT
  Sex: Female

DRUGS (1)
  1. CLARAVIS [Suspect]
     Dosage: ORAL
     Route: 048
     Dates: end: 20070701

REACTIONS (1)
  - UNINTENDED PREGNANCY [None]
